FAERS Safety Report 10268346 (Version 1)
Quarter: 2014Q2

REPORT INFORMATION
  Report Type: Spontaneous
  Country: GB (occurrence: GB)
  Receive Date: 20140630
  Receipt Date: 20140630
  Transmission Date: 20141212
  Serious: Yes (Other)
  Sender: FDA-Public Use
  Company Number: GB-TEVA-490110ISR

PATIENT
  Age: 88 Year
  Sex: Female
  Weight: 82.55 kg

DRUGS (2)
  1. TRIMETHOPRIM [Suspect]
     Indication: URINARY TRACT INFECTION
     Route: 048
     Dates: start: 20140318, end: 20140318
  2. INHALERS [Concomitant]
     Indication: ASTHMA
     Dosage: ASTHMA INHALERS (BLUE AND BROWN)
     Route: 055

REACTIONS (3)
  - Hallucination, visual [Recovered/Resolved]
  - Tremor [Recovered/Resolved]
  - Vomiting [Recovered/Resolved]
